FAERS Safety Report 25273049 (Version 1)
Quarter: 2025Q2

REPORT INFORMATION
  Report Type: Spontaneous
  Country: FR (occurrence: FR)
  Receive Date: 20250506
  Receipt Date: 20250506
  Transmission Date: 20250717
  Serious: Yes (Other)
  Sender: ACCORD
  Company Number: None

PATIENT
  Age: 76 Year
  Sex: Female
  Weight: 59 kg

DRUGS (2)
  1. CARBOPLATIN [Suspect]
     Active Substance: CARBOPLATIN
     Indication: Uterine cancer
     Dosage: STRENGTH: 10 MG/ML, 1ST DOSE ON 08/10/24 AT 320MG AND 4TH DOSE ON 10/12/24 AT 420MG
     Dates: start: 20241008, end: 20250107
  2. DOSTARLIMAB [Suspect]
     Active Substance: DOSTARLIMAB
     Indication: Uterine cancer
     Dosage: STRENGTH: 500 MG
     Dates: start: 20241008, end: 20250107

REACTIONS (2)
  - Anal inflammation [Recovered/Resolved]
  - Gastrointestinal disorder [Recovered/Resolved]

NARRATIVE: CASE EVENT DATE: 20250101
